FAERS Safety Report 25325153 (Version 1)
Quarter: 2025Q2

REPORT INFORMATION
  Report Type: Spontaneous
  Country: US (occurrence: None)
  Receive Date: 20250516
  Receipt Date: 20250516
  Transmission Date: 20250717
  Serious: Yes (Hospitalization, Disabling)
  Sender: FDA-CTU
  Company Number: None

PATIENT
  Age: 52 Year
  Sex: Female
  Weight: 112.05 kg

DRUGS (2)
  1. TRAZODONE [Suspect]
     Active Substance: TRAZODONE HYDROCHLORIDE
     Indication: Sleep disorder
     Dosage: 30 TABLET(S) AT BEDTIME ORAL
     Route: 048
     Dates: start: 20240603, end: 20250510
  2. BB-12 [Concomitant]

REACTIONS (2)
  - Breast mass [None]
  - Breast discharge [None]

NARRATIVE: CASE EVENT DATE: 20241225
